FAERS Safety Report 19091096 (Version 1)
Quarter: 2021Q2

REPORT INFORMATION
  Report Type: Spontaneous
  Country: US (occurrence: US)
  Receive Date: 20210405
  Receipt Date: 20210405
  Transmission Date: 20210717
  Serious: No
  Sender: FDA-Public Use
  Company Number: US-ORGANON-O2103USA002640

PATIENT
  Sex: Female

DRUGS (5)
  1. PREGNYL [Suspect]
     Active Substance: CHORIOGONADOTROPIN ALFA
     Indication: ASSISTED FERTILISATION
     Dosage: 10,000 UNITS, FOR 1 DOSE
     Route: 058
  2. DOXYCYCLINE [DOXYCYCLINE MONOHYDRATE] [Concomitant]
     Dosage: UNK
  3. TAMOXIFEN [Concomitant]
     Active Substance: TAMOXIFEN
     Dosage: UNK
  4. MENOPUR [Concomitant]
     Active Substance: FOLLITROPIN\LUTEINIZING HORMONE
     Dosage: UNK
  5. STERILE WATER [Suspect]
     Active Substance: WATER
     Dosage: UNK

REACTIONS (1)
  - Diarrhoea [Unknown]
